FAERS Safety Report 23979478 (Version 1)
Quarter: 2024Q2

REPORT INFORMATION
  Report Type: Spontaneous
  Country: US (occurrence: None)
  Receive Date: 20240615
  Receipt Date: 20240615
  Transmission Date: 20240716
  Serious: No
  Sender: FDA-Public Use
  Company Number: 2024A135483

PATIENT
  Age: 27109 Day
  Sex: Female

DRUGS (1)
  1. FASENRA [Suspect]
     Active Substance: BENRALIZUMAB
     Dosage: 30.0MG/ML UNKNOWN
     Route: 058

REACTIONS (5)
  - Peripheral swelling [Not Recovered/Not Resolved]
  - Abdominal distension [Not Recovered/Not Resolved]
  - Pollakiuria [Unknown]
  - Headache [Not Recovered/Not Resolved]
  - Injection site rash [Unknown]

NARRATIVE: CASE EVENT DATE: 20240530
